FAERS Safety Report 6028230-6 (Version None)
Quarter: 2008Q4

REPORT INFORMATION
  Report Type: 
  Country: None (occurrence: None)
  Receive Date: 20081231
  Receipt Date: 20081231
  Transmission Date: 20090506
  Serious: Yes (Hospitalization)
  Sender: FDA-Public Use
  Company Number: None

PATIENT
  Age: 56 Year
  Sex: Male

DRUGS (1)
  1. WARFARIN SODIUM [Suspect]
     Indication: ATRIAL FIBRILLATION
     Dosage: 5 MG EVERY DAY PO
     Route: 048
     Dates: start: 20071115, end: 20080609

REACTIONS (5)
  - CEREBELLAR HAEMATOMA [None]
  - CEREBRAL HAEMORRHAGE [None]
  - FALL [None]
  - LOSS OF CONSCIOUSNESS [None]
  - SUBDURAL HAEMATOMA [None]
